FAERS Safety Report 6761915-2 (Version None)
Quarter: 2010Q2

REPORT INFORMATION
  Report Type: 
  Country: None (occurrence: None)
  Receive Date: 20100609
  Receipt Date: 20100603
  Transmission Date: 20101027
  Serious: Yes (Death)
  Sender: FDA-Public Use
  Company Number: CN-JNJFOC-20100602243

PATIENT
  Age: 40 Year
  Sex: Female

DRUGS (4)
  1. ITRACONAZOLE [Suspect]
     Indication: ASPERGILLOSIS
     Route: 042
  2. ITRACONAZOLE [Suspect]
     Route: 042
  3. ITRACONAZOLE [Suspect]
     Route: 048
  4. AMPHOTERICIN B [Suspect]
     Indication: ASPERGILLOSIS
     Dosage: NEBULISATION 5-10MG TWICE A DAY
     Route: 065

REACTIONS (2)
  - DISEASE PROGRESSION [None]
  - DRUG INEFFECTIVE [None]
